FAERS Safety Report 9627090 (Version 3)
Quarter: 2013Q4

REPORT INFORMATION
  Report Type: Spontaneous
  Country: ES (occurrence: ES)
  Receive Date: 20131016
  Receipt Date: 20131023
  Transmission Date: 20140711
  Serious: Yes (Other)
  Sender: FDA-Public Use
  Company Number: ES-SA-THYM-1004025

PATIENT
  Age: 24 Year
  Sex: Female
  Weight: 74 kg

DRUGS (4)
  1. THYMOGLOBULIN [Suspect]
     Indication: STEM CELL TRANSPLANT
     Dosage: TOTAL DOSE OF THYMOGLOBULIN OF 5 MG/KG WAS ADMINISTERED
     Route: 042
     Dates: start: 20120421, end: 20120423
  2. BUSULFAN [Concomitant]
     Indication: STEM CELL TRANSPLANT
     Dosage: REPORTED AS BUSULFANO
     Route: 042
     Dates: start: 20120417, end: 20120420
  3. CYCLOPHOSPHAMIDE [Concomitant]
     Indication: STEM CELL TRANSPLANT
     Route: 042
     Dates: start: 20120421, end: 20120422
  4. CORTICOSTEROID NOS [Concomitant]
     Indication: PREMEDICATION
     Dosage: HIGHER DOSE

REACTIONS (4)
  - Anuria [Recovered/Resolved]
  - Pyrexia [Recovered/Resolved]
  - Hypotension [Recovered/Resolved]
  - Chills [Recovered/Resolved]
